FAERS Safety Report 6116943-7 (Version None)
Quarter: 2009Q1

REPORT INFORMATION
  Report Type: 
  Country: None (occurrence: None)
  Receive Date: 20090314
  Receipt Date: 20090107
  Transmission Date: 20090719
  Serious: No
  Sender: FDA-Public Use
  Company Number: US-ABBOTT-08P-163-0495381-00

PATIENT
  Sex: Female
  Weight: 64.468 kg

DRUGS (5)
  1. HUMIRA [Suspect]
     Indication: CROHN'S DISEASE
     Route: 058
     Dates: start: 20081026
  2. RESCUE INHALER [Concomitant]
     Indication: ASTHMA
     Dosage: AS NEEDED
     Route: 055
  3. NASONEX [Concomitant]
     Indication: ASTHMA
     Dosage: AS NEEDED, SHOULD BE USED DAILY BUT IT TRIGGERS MIGRAINES
     Route: 055
  4. ZANTAC [Concomitant]
     Indication: GASTROOESOPHAGEAL REFLUX DISEASE
     Dosage: UNKNOWN
  5. NEXIUM [Concomitant]
     Indication: GASTROOESOPHAGEAL REFLUX DISEASE
     Dosage: UNKNOWN

REACTIONS (3)
  - ACCIDENTAL NEEDLE STICK [None]
  - DRUG DELIVERY SYSTEM MALFUNCTION [None]
  - INCORRECT DOSE ADMINISTERED [None]
